FAERS Safety Report 23766116 (Version 1)
Quarter: 2024Q2

REPORT INFORMATION
  Report Type: Report from Study
  Country: US (occurrence: US)
  Receive Date: 20240421
  Receipt Date: 20240421
  Transmission Date: 20240716
  Serious: Yes (Hospitalization)
  Sender: FDA-Public Use
  Company Number: US-Merck Healthcare KGaA-2024020448

PATIENT
  Age: 71 Year
  Sex: Female

DRUGS (1)
  1. REBIF [Suspect]
     Active Substance: INTERFERON BETA-1A
     Indication: Product used for unknown indication
     Route: 058

REACTIONS (5)
  - Pneumonia aspiration [Unknown]
  - Femur fracture [Unknown]
  - Urinary tract infection [Unknown]
  - Sepsis [Unknown]
  - Deep vein thrombosis [Unknown]
